FAERS Safety Report 24467257 (Version 2)
Quarter: 2024Q4

REPORT INFORMATION
  Report Type: Spontaneous
  Country: US (occurrence: US)
  Receive Date: 20241018
  Receipt Date: 20241107
  Transmission Date: 20250115
  Serious: No
  Sender: ROCHE
  Company Number: US-ROCHE-3557015

PATIENT
  Age: 30 Year
  Sex: Female

DRUGS (2)
  1. XOLAIR [Suspect]
     Active Substance: OMALIZUMAB
     Indication: Hereditary alpha tryptasaemia
     Dosage: STRENGTH: 300MG/2ML
     Route: 058
  2. XOLAIR [Suspect]
     Active Substance: OMALIZUMAB
     Dosage: STRENGTH: 300MG/2ML
     Route: 058

REACTIONS (2)
  - Off label use [Unknown]
  - No adverse event [Unknown]
